FAERS Safety Report 4366901-8 (Version None)
Quarter: 2004Q2

REPORT INFORMATION
  Report Type: 
  Country: None (occurrence: None)
  Receive Date: 20040526
  Receipt Date: 20040526
  Transmission Date: 20050107
  Serious: Yes (Hospitalization)
  Sender: FDA-Public Use
  Company Number: None

PATIENT
  Age: 55 Year
  Sex: Female
  Weight: 61.6892 kg

DRUGS (3)
  1. FLUOROURACIL [Suspect]
  2. CISPLATIN [Suspect]
  3. RADIOTHERAPY [Suspect]

REACTIONS (1)
  - OESOPHAGITIS [None]
